FAERS Safety Report 4818869-5 (Version None)
Quarter: 2005Q4

REPORT INFORMATION
  Report Type: 
  Country: None (occurrence: None)
  Receive Date: 20051101
  Receipt Date: 20051021
  Transmission Date: 20060501
  Serious: Yes (Death)
  Sender: FDA-Public Use
  Company Number: 805#9#2005-00099

PATIENT
  Age: 88 Year
  Sex: Male

DRUGS (3)
  1. ALPROSTADIL [Suspect]
     Indication: ARTERIOSCLEROSIS OBLITERANS
     Dosage: 1.120 MCG (60 MCG 2 IN 1 DAY(S))
     Route: 041
     Dates: start: 20050512, end: 20050523
  2. SARPOGRELATE HYDROCHLORIDE [Concomitant]
  3. AMLODIPINE BESYLATE [Concomitant]

REACTIONS (1)
  - CARDIAC FAILURE [None]
